FAERS Safety Report 5637944-9 (Version None)
Quarter: 2008Q1

REPORT INFORMATION
  Report Type: 
  Country: None (occurrence: None)
  Receive Date: 20080222
  Receipt Date: 20080222
  Transmission Date: 20080703
  Serious: No
  Sender: FDA-Public Use
  Company Number: None

PATIENT
  Age: 56 Year
  Sex: Female

DRUGS (3)
  1. TOPROL-XL [Suspect]
     Indication: ARRHYTHMIA SUPRAVENTRICULAR
     Dosage: 50MG QD
  2. TOPROL-XL [Suspect]
     Indication: HYPERTENSION
     Dosage: 50MG QD
  3. HYDROCHLOROTHIAZIDE [Concomitant]

REACTIONS (3)
  - ARRHYTHMIA [None]
  - MUSCLE SPASMS [None]
  - PHARMACEUTICAL PRODUCT COMPLAINT [None]
